FAERS Safety Report 6377889-2 (Version None)
Quarter: 2009Q3

REPORT INFORMATION
  Report Type: 
  Country: None (occurrence: None)
  Receive Date: 20090925
  Receipt Date: 20090914
  Transmission Date: 20100115
  Serious: Yes (Other)
  Sender: FDA-Public Use
  Company Number: PHHY2009BR39881

PATIENT
  Age: 62 Year
  Sex: Female

DRUGS (1)
  1. DIOVAN AMLO FIX [Suspect]
     Indication: HYPERTENSION
     Dosage: ONE TABLET (320/5 MG) DAILY IN THE MORNING
     Route: 048
     Dates: start: 20090701

REACTIONS (11)
  - ANXIETY [None]
  - ASTHENIA [None]
  - BLOOD PRESSURE FLUCTUATION [None]
  - CRYING [None]
  - DEPRESSION [None]
  - FEELING ABNORMAL [None]
  - GAIT DISTURBANCE [None]
  - GASTRIC DISORDER [None]
  - GASTRITIS [None]
  - HYPOTENSION [None]
  - SOMNOLENCE [None]
